FAERS Safety Report 24254518 (Version 1)
Quarter: 2024Q3

REPORT INFORMATION
  Report Type: Spontaneous
  Country: US (occurrence: None)
  Receive Date: 20240826
  Receipt Date: 20240826
  Transmission Date: 20241016
  Serious: Yes (Other)
  Sender: Public
  Company Number: None

PATIENT
  Age: 76 Year
  Sex: Female

DRUGS (1)
  1. VYNDAMAX [Suspect]
     Active Substance: TAFAMIDIS
     Indication: Amyloidosis
     Dosage: 61MG QD ORAL
     Route: 048
     Dates: start: 20230629

REACTIONS (2)
  - Arthralgia [None]
  - Nephrolithiasis [None]

NARRATIVE: CASE EVENT DATE: 20240826
